FAERS Safety Report 14599805 (Version 1)
Quarter: 2018Q1

REPORT INFORMATION
  Report Type: Spontaneous
  Country: US (occurrence: US)
  Receive Date: 20180304
  Receipt Date: 20180304
  Transmission Date: 20180509
  Serious: Yes (Other)
  Sender: FDA-Public Use
  Company Number: None

PATIENT
  Age: 51 Year
  Sex: Female
  Weight: 85.5 kg

DRUGS (4)
  1. IBUPROFEN. [Concomitant]
     Active Substance: IBUPROFEN
  2. NP THYROID [Suspect]
     Active Substance: LEVOTHYROXINE\LIOTHYRONINE
     Indication: HYPOTHYROIDISM
     Dosage: ?          QUANTITY:1 TABLET(S);?
     Dates: start: 20180223, end: 20180303
  3. MVI [Concomitant]
     Active Substance: VITAMINS
  4. SYNTHESIS [Concomitant]

REACTIONS (7)
  - Pain in extremity [None]
  - Paraesthesia [None]
  - Fatigue [None]
  - Product substitution issue [None]
  - Headache [None]
  - Tinnitus [None]
  - Nasal congestion [None]

NARRATIVE: CASE EVENT DATE: 20180304
